FAERS Safety Report 9201024 (Version 5)
Quarter: 2014Q2

REPORT INFORMATION
  Report Type: Spontaneous
  Country: US (occurrence: US)
  Receive Date: 20130401
  Receipt Date: 20140530
  Transmission Date: 20141212
  Serious: Yes (Disabling)
  Sender: FDA-Public Use
  Company Number: US-009507513-1103USA03599

PATIENT
  Sex: Male
  Weight: 71.67 kg

DRUGS (2)
  1. PROPECIA [Suspect]
     Indication: ANDROGENETIC ALOPECIA
     Dosage: 1 MG, QD
     Route: 048
     Dates: start: 1999, end: 200907
  2. FINASTERIDE [Suspect]
     Indication: ANDROGENETIC ALOPECIA
     Dosage: 1 MG, QD
     Route: 048
     Dates: start: 1999, end: 200907

REACTIONS (16)
  - Anxiety [Not Recovered/Not Resolved]
  - Erectile dysfunction [Unknown]
  - Semen volume decreased [Unknown]
  - Infertility [Unknown]
  - Gynaecomastia [Unknown]
  - Sexual dysfunction [Unknown]
  - Libido decreased [Unknown]
  - Mental impairment [Unknown]
  - Asthenia [Unknown]
  - Fatigue [Unknown]
  - Emotional disorder [Unknown]
  - Blood oestrogen increased [Unknown]
  - Penile size reduced [Unknown]
  - Testicular disorder [Unknown]
  - Blood testosterone decreased [Unknown]
  - Depression [Not Recovered/Not Resolved]
